FAERS Safety Report 4704836-9 (Version None)
Quarter: 2005Q2

REPORT INFORMATION
  Report Type: 
  Country: None (occurrence: None)
  Receive Date: 20050630
  Receipt Date: 20050630
  Transmission Date: 20051028
  Serious: No
  Sender: FDA-Public Use
  Company Number: None

PATIENT
  Age: 58 Year
  Sex: Male
  Weight: 63.5036 kg

DRUGS (2)
  1. NASONEX [Suspect]
     Indication: SINUSITIS
     Dosage: 2 SPRAYS   TWICE ADAY    NASAL
     Route: 045
     Dates: start: 20050402, end: 20050629
  2. MUCINEX [Suspect]
     Indication: SINUSITIS
     Dosage: 2 TABLETS   EVERY 6 HRS   ORAL
     Route: 048
     Dates: start: 20050402, end: 20050420

REACTIONS (2)
  - AGEUSIA [None]
  - ANOSMIA [None]
